FAERS Safety Report 7001562-0 (Version None)
Quarter: 2010Q3

REPORT INFORMATION
  Report Type: 
  Country: None (occurrence: None)
  Receive Date: 20100920
  Receipt Date: 20100908
  Transmission Date: 20110219
  Serious: Yes (Hospitalization, Other)
  Sender: FDA-Public Use
  Company Number: US-AMGEN-KDL436988

PATIENT
  Sex: Male
  Weight: 113.5 kg

DRUGS (6)
  1. ENBREL [Suspect]
     Indication: PRODUCT USED FOR UNKNOWN INDICATION
  2. HUMIRA [Suspect]
     Indication: RHEUMATOID ARTHRITIS
     Dates: start: 20100401
  3. TRIAMTERENE [Concomitant]
  4. ATENOLOL [Concomitant]
  5. CYCLOSPORINE [Concomitant]
  6. PREDNISONE [Concomitant]

REACTIONS (8)
  - ANAPHYLACTIC REACTION [None]
  - ARTHRALGIA [None]
  - ARTHRITIS [None]
  - EYE DISORDER [None]
  - LOCALISED INFECTION [None]
  - MOBILITY DECREASED [None]
  - RHEUMATOID ARTHRITIS [None]
  - SCLERITIS [None]
